FAERS Safety Report 10335205 (Version 2)
Quarter: 2014Q3

REPORT INFORMATION
  Report Type: Report from Study
  Country: US (occurrence: US)
  Receive Date: 20140723
  Receipt Date: 20140801
  Transmission Date: 20150326
  Serious: Yes (Hospitalization)
  Sender: FDA-Public Use
  Company Number: US-EISAI INC-E2B_00000000010075

PATIENT
  Age: 54 Year
  Sex: Male
  Weight: 72.8 kg

DRUGS (13)
  1. ADVAIR DISKUS [Concomitant]
     Active Substance: FLUTICASONE PROPIONATE\SALMETEROL XINAFOATE
  2. SINGULAIR [Concomitant]
     Active Substance: MONTELUKAST SODIUM
  3. LIVALO [Concomitant]
     Active Substance: PITAVASTATIN CALCIUM
  4. LORCASERIN HYDROCHLORIDE [Suspect]
     Active Substance: LORCASERIN HYDROCHLORIDE
     Indication: WEIGHT CONTROL
     Dosage: DOUBLE-BLIND
     Route: 048
     Dates: start: 20140702, end: 20140714
  5. PROAIR HFA [Concomitant]
     Active Substance: ALBUTEROL SULFATE
  6. METFORMIN [Concomitant]
     Active Substance: METFORMIN HYDROCHLORIDE
  7. ASPIRIN. [Concomitant]
     Active Substance: ASPIRIN
  8. SPIRIVA [Concomitant]
     Active Substance: TIOTROPIUM BROMIDE MONOHYDRATE
  9. LISINOPRIL. [Concomitant]
     Active Substance: LISINOPRIL
  10. PRILOSEC [Concomitant]
     Active Substance: OMEPRAZOLE MAGNESIUM
  11. XOPENEX [Concomitant]
     Active Substance: LEVALBUTEROL HYDROCHLORIDE
  12. LISINOPRIL. [Concomitant]
     Active Substance: LISINOPRIL
  13. AMLODIPINE [Concomitant]
     Active Substance: AMLODIPINE BESYLATE

REACTIONS (1)
  - Dehydration [Recovered/Resolved]

NARRATIVE: CASE EVENT DATE: 20140714
